FAERS Safety Report 12843633 (Version 2)
Quarter: 2019Q4

REPORT INFORMATION
  Report Type: Spontaneous
  Country: PT (occurrence: PT)
  Receive Date: 20161013
  Receipt Date: 20191127
  Transmission Date: 20200122
  Serious: Yes (Other)
  Sender: FDA-Public Use
  Company Number: PT-TEVA-698811ISR

PATIENT
  Age: 40 Year
  Sex: Female

DRUGS (1)
  1. ENALAPRIL [Suspect]
     Active Substance: ENALAPRIL
     Indication: HYPERTENSION
     Dosage: DOSAGE NOT SPECIFIED
     Route: 048

REACTIONS (3)
  - Maternal exposure during pregnancy [Unknown]
  - Normal newborn [Unknown]
  - Caesarean section [Unknown]

NARRATIVE: CASE EVENT DATE: 2005
